FAERS Safety Report 10335301 (Version 2)
Quarter: 2014Q3

REPORT INFORMATION
  Report Type: Spontaneous
  Country: US (occurrence: US)
  Receive Date: 20140723
  Receipt Date: 20140730
  Transmission Date: 20150326
  Serious: No
  Sender: FDA-Public Use
  Company Number: US-AMGEN-USASP2014054386

PATIENT
  Age: 56 Year
  Sex: Female

DRUGS (1)
  1. ENBREL [Suspect]
     Active Substance: ETANERCEPT
     Indication: PSORIATIC ARTHROPATHY
     Dosage: 50 MG, QWK
     Route: 065
     Dates: start: 20131201

REACTIONS (4)
  - Balance disorder [Not Recovered/Not Resolved]
  - Fall [Not Recovered/Not Resolved]
  - Contusion [Not Recovered/Not Resolved]
  - Skin injury [Not Recovered/Not Resolved]

NARRATIVE: CASE EVENT DATE: 201405
